FAERS Safety Report 5278933-6 (Version None)
Quarter: 2007Q1

REPORT INFORMATION
  Report Type: 
  Country: None (occurrence: None)
  Receive Date: 20070327
  Receipt Date: 20070327
  Transmission Date: 20070707
  Serious: Yes (Other)
  Sender: FDA-Public Use
  Company Number: None

PATIENT
  Age: 48 Year
  Sex: Male
  Weight: 74 kg

DRUGS (1)
  1. OMNIPAQUE 70 [Suspect]
     Dosage: PER PKG INSERT
     Dates: start: 20070321

REACTIONS (4)
  - CATHETER SITE RELATED REACTION [None]
  - GRANULOMA [None]
  - MUSCLE SPASMS [None]
  - PAIN [None]
